FAERS Safety Report 4649357-7 (Version None)
Quarter: 2005Q2

REPORT INFORMATION
  Report Type: 
  Country: None (occurrence: None)
  Receive Date: 20050429
  Receipt Date: 20050329
  Transmission Date: 20051028
  Serious: Yes (Other)
  Sender: FDA-Public Use
  Company Number: HK-ABBOTT-05P-075-0295447-00

PATIENT
  Age: 36 Year
  Sex: Female
  Weight: 65 kg

DRUGS (2)
  1. REDUCTIL 10MG [Suspect]
     Indication: OBESITY
     Route: 048
  2. MEFENAMIC ACID [Concomitant]
     Indication: BACK PAIN

REACTIONS (3)
  - CAPILLARY LEAK SYNDROME [None]
  - NON-CARDIOGENIC PULMONARY OEDEMA [None]
  - PULMONARY HYPERTENSION [None]
